FAERS Safety Report 13547985 (Version 1)
Quarter: 2017Q2

REPORT INFORMATION
  Report Type: Spontaneous
  Country: CL (occurrence: CL)
  Receive Date: 20170516
  Receipt Date: 20170516
  Transmission Date: 20170830
  Serious: Yes (Death)
  Sender: FDA-Public Use
  Company Number: CL-ORPHAN EUROPE-2020782

PATIENT
  Age: 19 Year
  Sex: Female
  Weight: 61 kg

DRUGS (3)
  1. ARGININE [Concomitant]
     Active Substance: ARGININE
     Dates: start: 20160402, end: 20160404
  2. BENZOIC ACID [Concomitant]
     Active Substance: BENZOIC ACID
     Dates: start: 20160402, end: 20160404
  3. CARBAGLU [Suspect]
     Active Substance: CARGLUMIC ACID
     Indication: HYPERAMMONAEMIA
     Route: 048
     Dates: start: 20160403

REACTIONS (3)
  - Brain oedema [Fatal]
  - Off label use [Unknown]
  - Exposure during pregnancy [Unknown]

NARRATIVE: CASE EVENT DATE: 20160404
